FAERS Safety Report 13346733 (Version 2)
Quarter: 2017Q2

REPORT INFORMATION
  Report Type: Report from Study
  Country: US (occurrence: US)
  Receive Date: 20170317
  Receipt Date: 20170414
  Transmission Date: 20170830
  Serious: Yes (Hospitalization)
  Sender: FDA-Public Use
  Company Number: PHHY2017US039089

PATIENT
  Age: 8 Year
  Sex: Female
  Weight: 26.5 kg

DRUGS (58)
  1. NEORAL [Suspect]
     Active Substance: CYCLOSPORINE
     Dosage: 50 MG, QD
     Route: 065
     Dates: start: 20160104, end: 20160119
  2. NEORAL [Suspect]
     Active Substance: CYCLOSPORINE
     Dosage: 75 MG, QD
     Route: 065
     Dates: start: 20160922, end: 20160924
  3. SANDIMMUNE [Suspect]
     Active Substance: CYCLOSPORINE
     Dosage: 150 MG, QD
     Route: 065
     Dates: start: 20151117, end: 20151120
  4. SANDIMMUNE [Suspect]
     Active Substance: CYCLOSPORINE
     Dosage: 25 MG, QD
     Route: 065
     Dates: start: 20160422, end: 20160505
  5. SANDIMMUNE [Suspect]
     Active Substance: CYCLOSPORINE
     Dosage: 75 MG, QD
     Route: 065
     Dates: start: 20161017, end: 20161205
  6. SANDIMMUNE [Suspect]
     Active Substance: CYCLOSPORINE
     Dosage: 50 MG, QD (IN EVENING)
     Route: 065
     Dates: start: 20161205, end: 20161219
  7. GENGRAF [Suspect]
     Active Substance: CYCLOSPORINE
     Dosage: 25 MG, QD
     Route: 065
     Dates: start: 20160317, end: 20160422
  8. FERROUS SULFATE. [Concomitant]
     Active Substance: FERROUS SULFATE
     Indication: MICROCYTIC ANAEMIA
     Dosage: 325 MG, QD
     Route: 065
     Dates: start: 20151104
  9. PREDNISONE. [Concomitant]
     Active Substance: PREDNISONE
     Indication: JUVENILE IDIOPATHIC ARTHRITIS
     Dosage: 30 MG, QD
     Route: 065
     Dates: start: 20160505
  10. NEORAL [Suspect]
     Active Substance: CYCLOSPORINE
     Indication: HISTIOCYTOSIS HAEMATOPHAGIC
     Dosage: 3 MG/KG, QD
     Route: 065
     Dates: start: 20151107, end: 20151117
  11. NEORAL [Suspect]
     Active Substance: CYCLOSPORINE
     Dosage: 75 MG, QD
     Route: 065
     Dates: start: 20161017, end: 20161205
  12. SANDIMMUNE [Suspect]
     Active Substance: CYCLOSPORINE
     Dosage: 125 MG, QD
     Route: 065
     Dates: start: 20151120, end: 20151201
  13. GENGRAF [Suspect]
     Active Substance: CYCLOSPORINE
     Dosage: 75 MG, QD
     Route: 065
     Dates: start: 20151201, end: 20160104
  14. GENGRAF [Suspect]
     Active Substance: CYCLOSPORINE
     Dosage: 25 MG, QD
     Route: 065
     Dates: start: 20160422, end: 20160505
  15. KINERET [Suspect]
     Active Substance: ANAKINRA
     Indication: JUVENILE IDIOPATHIC ARTHRITIS
     Dosage: 100 MG, QD
     Route: 065
     Dates: start: 20151210, end: 20160505
  16. CALCIUM [Concomitant]
     Active Substance: CALCIUM
     Indication: PRODUCT USED FOR UNKNOWN INDICATION
     Dosage: 950 MG, QD
     Route: 065
     Dates: start: 20151109
  17. NEORAL [Suspect]
     Active Substance: CYCLOSPORINE
     Dosage: 25 MG, QD
     Route: 065
     Dates: start: 20160422, end: 20160505
  18. SANDIMMUNE [Suspect]
     Active Substance: CYCLOSPORINE
     Indication: HISTIOCYTOSIS HAEMATOPHAGIC
     Dosage: 3 MG/KG, QD
     Route: 065
     Dates: start: 20151107, end: 20151117
  19. SANDIMMUNE [Suspect]
     Active Substance: CYCLOSPORINE
     Dosage: 50 MG, QD
     Route: 065
     Dates: start: 20160119, end: 20160225
  20. SANDIMMUNE [Suspect]
     Active Substance: CYCLOSPORINE
     Dosage: 25 MG, BID (25 IN AM)
     Route: 065
     Dates: start: 20170109
  21. GENGRAF [Suspect]
     Active Substance: CYCLOSPORINE
     Dosage: 50 MG, QD
     Route: 065
     Dates: start: 20160119, end: 20160225
  22. GENGRAF [Suspect]
     Active Substance: CYCLOSPORINE
     Dosage: 50 MG, QD
     Route: 065
     Dates: start: 20161219, end: 20170109
  23. OMEPRAZOLE. [Concomitant]
     Active Substance: OMEPRAZOLE
     Indication: GASTROOESOPHAGEAL REFLUX DISEASE
     Dosage: 20 MG, QD
     Route: 065
     Dates: start: 20151023
  24. VITAMIN D3 [Concomitant]
     Active Substance: CHOLECALCIFEROL
     Indication: PRODUCT USED FOR UNKNOWN INDICATION
     Dosage: 5000 IU, QD
     Route: 065
     Dates: start: 20151109
  25. SANDIMMUNE [Suspect]
     Active Substance: CYCLOSPORINE
     Dosage: 50 MG, QD
     Route: 065
     Dates: start: 20160225, end: 20160317
  26. SANDIMMUNE [Suspect]
     Active Substance: CYCLOSPORINE
     Dosage: 25 MG, QD
     Route: 065
     Dates: start: 20160317, end: 20160422
  27. GENGRAF [Suspect]
     Active Substance: CYCLOSPORINE
     Indication: HISTIOCYTOSIS HAEMATOPHAGIC
     Dosage: 3 MG/KG, QD
     Route: 065
     Dates: start: 20151107, end: 20151117
  28. GENGRAF [Suspect]
     Active Substance: CYCLOSPORINE
     Dosage: 75 MG, QD
     Route: 065
     Dates: start: 20160922, end: 20160924
  29. GENGRAF [Suspect]
     Active Substance: CYCLOSPORINE
     Dosage: 75 MG, QD
     Route: 065
     Dates: start: 20161017, end: 20161205
  30. NORVASC [Concomitant]
     Active Substance: AMLODIPINE BESYLATE
     Indication: HYPERTENSION
     Dosage: 10 MG, QD
     Route: 065
     Dates: start: 20151130
  31. NEORAL [Suspect]
     Active Substance: CYCLOSPORINE
     Dosage: 50 MG, QD
     Route: 065
     Dates: start: 20160119, end: 20160225
  32. NEORAL [Suspect]
     Active Substance: CYCLOSPORINE
     Dosage: 75 MG, QD
     Route: 065
     Dates: start: 20160924, end: 20161017
  33. KINERET [Suspect]
     Active Substance: ANAKINRA
     Dosage: 100 MG, QD
     Route: 065
     Dates: start: 20160912
  34. MULTI VITAMIN [Concomitant]
     Active Substance: VITAMINS
     Indication: PRODUCT USED FOR UNKNOWN INDICATION
     Dosage: 1 DF (1 TABLET), QD
     Route: 065
     Dates: start: 20150925
  35. NEORAL [Suspect]
     Active Substance: CYCLOSPORINE
     Dosage: 125 MG, QD
     Route: 065
     Dates: start: 20151120, end: 20151201
  36. NEORAL [Suspect]
     Active Substance: CYCLOSPORINE
     Dosage: 50 MG, QD
     Route: 065
     Dates: start: 20160225, end: 20160317
  37. NEORAL [Suspect]
     Active Substance: CYCLOSPORINE
     Dosage: 50 MG, QD (IN PM)
     Route: 065
     Dates: start: 20161205, end: 20161219
  38. NEORAL [Suspect]
     Active Substance: CYCLOSPORINE
     Dosage: 50 MG, QD
     Route: 065
     Dates: start: 20161219, end: 20170109
  39. GENGRAF [Suspect]
     Active Substance: CYCLOSPORINE
     Dosage: 125 MG, QD
     Route: 065
     Dates: start: 20151120, end: 20151201
  40. KINERET [Suspect]
     Active Substance: ANAKINRA
     Indication: HISTIOCYTOSIS HAEMATOPHAGIC
     Dosage: 100 MG, QD
     Route: 065
     Dates: start: 20150927, end: 20151023
  41. ACZ885 [Suspect]
     Active Substance: CANAKINUMAB
     Indication: JUVENILE IDIOPATHIC ARTHRITIS
     Dosage: 82 MG, QD
     Route: 065
     Dates: start: 20150822, end: 20160917
  42. NEORAL [Suspect]
     Active Substance: CYCLOSPORINE
     Dosage: 150 MG, QD
     Route: 065
     Dates: start: 20151117, end: 20151120
  43. NEORAL [Suspect]
     Active Substance: CYCLOSPORINE
     Dosage: 75 MG, QD
     Route: 065
     Dates: start: 20151201, end: 20160104
  44. NEORAL [Suspect]
     Active Substance: CYCLOSPORINE
     Dosage: 25 MG, BID (25 MG IN AM)
     Route: 065
     Dates: start: 20170109
  45. SANDIMMUNE [Suspect]
     Active Substance: CYCLOSPORINE
     Dosage: 75 MG, QD (IN MORNING)
     Route: 065
     Dates: start: 20160924, end: 20161017
  46. GENGRAF [Suspect]
     Active Substance: CYCLOSPORINE
     Dosage: 25 MG, BID (25 IN AM)
     Route: 065
     Dates: start: 20170109
  47. KINERET [Suspect]
     Active Substance: ANAKINRA
     Dosage: 100 MG, QD
     Route: 065
     Dates: start: 20160505, end: 20160728
  48. NEORAL [Suspect]
     Active Substance: CYCLOSPORINE
     Dosage: 25 MG, QD
     Route: 065
     Dates: start: 20160317, end: 20160422
  49. SANDIMMUNE [Suspect]
     Active Substance: CYCLOSPORINE
     Dosage: 75 MG, QD
     Route: 065
     Dates: start: 20151201, end: 20160104
  50. SANDIMMUNE [Suspect]
     Active Substance: CYCLOSPORINE
     Dosage: 50 MG, QD (IN MORNING)
     Route: 065
     Dates: start: 20160104, end: 20160119
  51. SANDIMMUNE [Suspect]
     Active Substance: CYCLOSPORINE
     Dosage: 75 MG, QD
     Route: 065
     Dates: start: 20160922, end: 20160924
  52. SANDIMMUNE [Suspect]
     Active Substance: CYCLOSPORINE
     Dosage: 50 MG, QD
     Route: 065
     Dates: start: 20161219, end: 20170109
  53. GENGRAF [Suspect]
     Active Substance: CYCLOSPORINE
     Dosage: 150 MG, QD
     Route: 065
     Dates: start: 20151117, end: 20151120
  54. GENGRAF [Suspect]
     Active Substance: CYCLOSPORINE
     Dosage: 50 MG, QD (IN MORNING)
     Route: 065
     Dates: start: 20160104, end: 20160119
  55. GENGRAF [Suspect]
     Active Substance: CYCLOSPORINE
     Dosage: 50 MG, QD
     Route: 065
     Dates: start: 20160225, end: 20160317
  56. GENGRAF [Suspect]
     Active Substance: CYCLOSPORINE
     Dosage: 75 MG, QD (IN MORNING)
     Route: 065
     Dates: start: 20160924, end: 20161017
  57. GENGRAF [Suspect]
     Active Substance: CYCLOSPORINE
     Dosage: (IN EVENING) 50 MG, QD
     Route: 065
     Dates: start: 20161205, end: 20161219
  58. KINERET [Suspect]
     Active Substance: ANAKINRA
     Dosage: 100 MG, QD
     Route: 065
     Dates: start: 20160728, end: 20160912

REACTIONS (4)
  - Headache [Unknown]
  - Pyrexia [Unknown]
  - Influenza [Recovered/Resolved]
  - Product use in unapproved indication [Unknown]

NARRATIVE: CASE EVENT DATE: 20160508
